FAERS Safety Report 21272728 (Version 2)
Quarter: 2022Q3

REPORT INFORMATION
  Report Type: Spontaneous
  Country: FR (occurrence: FR)
  Receive Date: 20220831
  Receipt Date: 20220925
  Transmission Date: 20221027
  Serious: Yes (Hospitalization, Other)
  Sender: FDA-Public Use
  Company Number: None

PATIENT
  Age: 71 Year
  Sex: Female
  Weight: 55 kg

DRUGS (10)
  1. VELETRI [Suspect]
     Active Substance: EPOPROSTENOL
     Indication: Pulmonary arterial hypertension
     Route: 042
  2. GABAPENTIN [Suspect]
     Active Substance: GABAPENTIN
     Indication: Neuralgia
     Route: 048
     Dates: end: 20220717
  3. CIPROFLOXACIN [Suspect]
     Active Substance: CIPROFLOXACIN
     Indication: Bacterial sepsis
     Route: 042
     Dates: start: 20220714, end: 20220718
  4. TADALAFIL [Suspect]
     Active Substance: TADALAFIL
     Indication: Pulmonary arterial hypertension
     Route: 048
  5. CLOXACILLIN SODIUM [Suspect]
     Active Substance: CLOXACILLIN SODIUM
     Indication: Bacterial sepsis
     Route: 042
     Dates: start: 20220714, end: 20220729
  6. MIANSERIN HYDROCHLORIDE [Suspect]
     Active Substance: MIANSERIN HYDROCHLORIDE
     Indication: Depression
     Route: 048
  7. AMBRISENTAN [Suspect]
     Active Substance: AMBRISENTAN
     Indication: Pulmonary arterial hypertension
     Route: 048
  8. ESCITALOPRAM [Suspect]
     Active Substance: ESCITALOPRAM OXALATE
     Indication: Depression
     Route: 048
  9. LANSOPRAZOLE [Suspect]
     Active Substance: LANSOPRAZOLE
     Indication: Hiatus hernia
     Route: 048
  10. TACROLIMUS [Suspect]
     Active Substance: TACROLIMUS
     Indication: Liver transplant
     Route: 048

REACTIONS (2)
  - Leukopenia [Not Recovered/Not Resolved]
  - Neutropenia [Not Recovered/Not Resolved]

NARRATIVE: CASE EVENT DATE: 20220718
